FAERS Safety Report 4497982-9 (Version None)
Quarter: 2004Q4

REPORT INFORMATION
  Report Type: 
  Country: None (occurrence: None)
  Receive Date: 20041105
  Receipt Date: 20041029
  Transmission Date: 20050328
  Serious: Yes (Hospitalization)
  Sender: FDA-Public Use
  Company Number: KII-2004-0013734

PATIENT
  Sex: Female

DRUGS (5)
  1. MORPHINE SULFATE [Suspect]
     Indication: PAIN
     Dosage: ORAL
     Route: 048
  2. ACETAMINOPHEN AND HYDROCODONE BITARTRATE [Suspect]
     Indication: PAIN
     Dosage: ORAL
     Route: 048
  3. SSRI () [Suspect]
     Dosage: ORAL
     Route: 048
  4. HYPNOTICS AND SEDATIVES () [Suspect]
     Dosage: ORAL
     Route: 048
  5. PHENCYCLIDINE (PHENCYCLIDINE) [Suspect]

REACTIONS (4)
  - DEPRESSED LEVEL OF CONSCIOUSNESS [None]
  - DRUG SCREEN POSITIVE [None]
  - MEDICATION ERROR [None]
  - SOMNOLENCE [None]
